FAERS Safety Report 4572110-X (Version None)
Quarter: 2005Q1

REPORT INFORMATION
  Report Type: 
  Country: None (occurrence: None)
  Receive Date: 20050202
  Receipt Date: 20050114
  Transmission Date: 20050727
  Serious: Yes (Other)
  Sender: FDA-Public Use
  Company Number: USA050188314

PATIENT
  Age: 87 Year
  Sex: Female
  Weight: 51 kg

DRUGS (1)
  1. FORTEO [Suspect]
     Indication: OSTEOPOROSIS
     Dosage: 20 UG DAY
     Dates: start: 20040901, end: 20050101

REACTIONS (4)
  - BLOOD CALCIUM INCREASED [None]
  - CONFUSIONAL STATE [None]
  - MEMORY IMPAIRMENT [None]
  - WEIGHT DECREASED [None]
